FAERS Safety Report 11414626 (Version 1)
Quarter: 2015Q3

REPORT INFORMATION
  Report Type: Report from Study
  Country: US (occurrence: US)
  Receive Date: 20150825
  Receipt Date: 20150825
  Transmission Date: 20151125
  Serious: No
  Sender: FDA-Public Use
  Company Number: US-AMGEN-USASP2015084245

PATIENT
  Age: 56 Year
  Sex: Female

DRUGS (4)
  1. ENBREL [Suspect]
     Active Substance: ETANERCEPT
     Indication: PSORIATIC ARTHROPATHY
  2. ENBREL [Suspect]
     Active Substance: ETANERCEPT
     Indication: RHEUMATOID ARTHRITIS
     Dosage: 50 MG, QWK
     Route: 065
     Dates: end: 2015
  3. ENBREL [Suspect]
     Active Substance: ETANERCEPT
     Indication: PSORIASIS
  4. METHOTREXATE [Concomitant]
     Active Substance: METHOTREXATE
     Dosage: UNK (4 TABS WEEK)

REACTIONS (6)
  - White blood cell count decreased [Unknown]
  - Mobility decreased [Not Recovered/Not Resolved]
  - Anaemia [Unknown]
  - Joint swelling [Not Recovered/Not Resolved]
  - Red blood cell count decreased [Unknown]
  - Somnolence [Unknown]

NARRATIVE: CASE EVENT DATE: 2015
